FAERS Safety Report 11259406 (Version 1)
Quarter: 2015Q3

REPORT INFORMATION
  Report Type: Spontaneous
  Country: US (occurrence: US)
  Receive Date: 20150710
  Receipt Date: 20150710
  Transmission Date: 20151125
  Serious: No
  Sender: FDA-Public Use
  Company Number: US-PURDUE-USA-2014-0117877

PATIENT
  Age: 37 Year
  Sex: Male

DRUGS (2)
  1. BUTRANS [Suspect]
     Active Substance: BUPRENORPHINE
     Indication: PAIN
     Dosage: 20 MCG/HR, WEEKLY
     Route: 062
     Dates: start: 201411
  2. BUTRANS [Suspect]
     Active Substance: BUPRENORPHINE
     Dosage: 20 MCG/HR, WEEKLY
     Route: 062
     Dates: start: 201404

REACTIONS (17)
  - Drug effect decreased [Unknown]
  - Drug withdrawal syndrome [Unknown]
  - Application site scab [Unknown]
  - Application site discolouration [Unknown]
  - Application site burn [Unknown]
  - Limb discomfort [Unknown]
  - Feeling abnormal [Unknown]
  - Application site erythema [Unknown]
  - Application site vesicles [Unknown]
  - Confusional state [Unknown]
  - Application site pain [Unknown]
  - Dermal absorption impaired [Unknown]
  - Weight decreased [Unknown]
  - Device leakage [Unknown]
  - Application site dryness [Unknown]
  - Disorientation [Unknown]
  - Hyperhidrosis [Unknown]

NARRATIVE: CASE EVENT DATE: 20141122
